FAERS Safety Report 12426452 (Version 1)
Quarter: 2016Q2

REPORT INFORMATION
  Report Type: Spontaneous
  Country: EC (occurrence: EC)
  Receive Date: 20160601
  Receipt Date: 20160601
  Transmission Date: 20160815
  Serious: Yes (Other)
  Sender: FDA-Public Use
  Company Number: EC-JNJFOC-20160528918

PATIENT
  Sex: Male

DRUGS (2)
  1. CILOSTAZOL. [Concomitant]
     Active Substance: CILOSTAZOL
     Route: 065
  2. XARELTO [Suspect]
     Active Substance: RIVAROXABAN
     Indication: PRODUCT USED FOR UNKNOWN INDICATION
     Route: 048

REACTIONS (2)
  - Arterial thrombosis [Unknown]
  - Rash [Unknown]
